FAERS Safety Report 7925817-8 (Version None)
Quarter: 2011Q4

REPORT INFORMATION
  Report Type: 
  Country: None (occurrence: None)
  Receive Date: 20111118
  Receipt Date: 20110413
  Transmission Date: 20120403
  Serious: No
  Sender: FDA-Public Use
  Company Number: US-AMGEN-USASP2011019659

PATIENT
  Age: 27 Year
  Sex: Female

DRUGS (1)
  1. ENBREL [Suspect]
     Indication: RHEUMATOID ARTHRITIS
     Dosage: UNK
     Dates: start: 20110401

REACTIONS (4)
  - PYREXIA [None]
  - PHARYNGITIS STREPTOCOCCAL [None]
  - OROPHARYNGEAL PAIN [None]
  - FATIGUE [None]
